FAERS Safety Report 6692998-6 (Version None)
Quarter: 2010Q2

REPORT INFORMATION
  Report Type: 
  Country: None (occurrence: None)
  Receive Date: 20100422
  Receipt Date: 20100419
  Transmission Date: 20101027
  Serious: Yes (Death)
  Sender: FDA-Public Use
  Company Number: PHHY2010CA23874

PATIENT
  Sex: Female
  Weight: 50 kg

DRUGS (10)
  1. EXELON [Suspect]
     Indication: DEMENTIA ALZHEIMER'S TYPE
     Dosage: 5 CM2
     Route: 062
     Dates: start: 20090212, end: 20090325
  2. EXELON [Suspect]
     Dosage: 10 CM2
     Route: 062
     Dates: start: 20090326
  3. FERROUS SULFATE TAB [Concomitant]
     Dosage: 300 DAILY
  4. ASPIRIN [Concomitant]
     Dosage: 80 DAILY
  5. CALCIUM [Concomitant]
     Dosage: 500
  6. VITAMIN D [Concomitant]
     Dosage: 400
  7. MICARDIS HCT [Concomitant]
     Dosage: 20/12.5 DAILY
  8. SERAX [Concomitant]
  9. NEXIUM [Concomitant]
     Dosage: 40
  10. CRESTOR [Concomitant]
     Dosage: 10, 1 TABLET
     Route: 048

REACTIONS (1)
  - PNEUMONIA [None]
